FAERS Safety Report 22248103 (Version 2)
Quarter: 2023Q2

REPORT INFORMATION
  Report Type: Spontaneous
  Country: CH (occurrence: CH)
  Receive Date: 20230425
  Receipt Date: 20230524
  Transmission Date: 20230721
  Serious: Yes (Other)
  Sender: FDA-Public Use
  Company Number: CH-PFIZER INC-202300161353

PATIENT
  Sex: Male

DRUGS (1)
  1. METHOTREXATE SODIUM [Suspect]
     Active Substance: METHOTREXATE SODIUM
     Dosage: UNK

REACTIONS (7)
  - Paranoia [Unknown]
  - Phobia [Unknown]
  - Fear [Unknown]
  - Feeling of despair [Unknown]
  - Compulsions [Unknown]
  - Loss of employment [Unknown]
  - Anxiety [Unknown]
